FAERS Safety Report 5113945-4 (Version None)
Quarter: 2006Q3

REPORT INFORMATION
  Report Type: 
  Country: None (occurrence: None)
  Receive Date: 20060925
  Receipt Date: 20060920
  Transmission Date: 20061208
  Serious: Yes (Other)
  Sender: FDA-Public Use
  Company Number: US-GLAXOSMITHKLINE-A0620816A

PATIENT
  Age: 41 Year
  Sex: Female

DRUGS (3)
  1. BC HEADACHE POWDER [Suspect]
     Indication: ILL-DEFINED DISORDER
     Dates: start: 19770101
  2. LITHIUM CARBONATE [Concomitant]
  3. XANAX [Concomitant]

REACTIONS (6)
  - ANOREXIA [None]
  - DEPENDENCE [None]
  - MALAISE [None]
  - NASOPHARYNGITIS [None]
  - NAUSEA [None]
  - PHARMACEUTICAL PRODUCT COMPLAINT [None]
